FAERS Safety Report 9463041 (Version 2)
Quarter: 2013Q3

REPORT INFORMATION
  Report Type: Spontaneous
  Country: BR (occurrence: BR)
  Receive Date: 20130816
  Receipt Date: 20130823
  Transmission Date: 20140515
  Serious: Yes (Hospitalization)
  Sender: FDA-Public Use
  Company Number: BR-ASTRAZENECA-2013SE63069

PATIENT
  Age: 686 Month
  Sex: Male

DRUGS (4)
  1. CRESTOR [Suspect]
     Indication: CARDIAC DISORDER
     Route: 048
  2. CRESTOR [Suspect]
     Indication: DYSLIPIDAEMIA
     Route: 048
  3. ANTIHYPERTENSIVE [Concomitant]
     Indication: HYPERTENSION
  4. ASA [Concomitant]

REACTIONS (1)
  - Vascular calcification [Recovered/Resolved]
